FAERS Safety Report 5164214-8 (Version None)
Quarter: 2006Q4

REPORT INFORMATION
  Report Type: 
  Country: None (occurrence: None)
  Receive Date: 20060918
  Receipt Date: 20050809
  Transmission Date: 20070319
  Serious: Yes (Other)
  Sender: FDA-Public Use
  Company Number: US-JNJFOC-20050803029

PATIENT
  Age: 30 Year
  Sex: Female
  Weight: 117.9352 kg

DRUGS (4)
  1. TOPAMAX [Suspect]
     Indication: CONVULSION
     Dosage: SEE IMAGE
     Route: 048
     Dates: start: 20010101, end: 20040101
  2. TOPAMAX [Suspect]
     Indication: CONVULSION
     Dosage: SEE IMAGE
     Route: 048
     Dates: start: 20040101, end: 20050401
  3. TOPAMAX [Suspect]
     Indication: CONVULSION
     Dosage: SEE IMAGE
     Route: 048
     Dates: start: 20040101, end: 20050401
  4. TRILEPTAL [Concomitant]

REACTIONS (2)
  - HYPERTENSION [None]
  - WEIGHT DECREASED [None]
